FAERS Safety Report 6737583-2 (Version None)
Quarter: 2010Q2

REPORT INFORMATION
  Report Type: 
  Country: None (occurrence: None)
  Receive Date: 20100521
  Receipt Date: 20100521
  Transmission Date: 20101027
  Serious: Yes (Hospitalization)
  Sender: FDA-Public Use
  Company Number: None

PATIENT
  Age: 85 Year
  Sex: Male

DRUGS (1)
  1. LANTUS [Suspect]
     Indication: DIABETES MELLITUS
     Dosage: 35U QHS SQ
     Route: 058

REACTIONS (8)
  - BLOOD GLUCOSE DECREASED [None]
  - COGNITIVE DISORDER [None]
  - DIZZINESS [None]
  - DYSARTHRIA [None]
  - FALL [None]
  - GLYCOSYLATED HAEMOGLOBIN INCREASED [None]
  - HUMERUS FRACTURE [None]
  - VISION BLURRED [None]
